FAERS Safety Report 6804273-7 (Version None)
Quarter: 2010Q2

REPORT INFORMATION
  Report Type: 
  Country: None (occurrence: None)
  Receive Date: 20100628
  Receipt Date: 20070304
  Transmission Date: 20101027
  Serious: No
  Sender: FDA-Public Use
  Company Number: US-PFIZER INC-2007017701

PATIENT
  Sex: Female
  Weight: 99.79 kg

DRUGS (7)
  1. CADUET [Suspect]
     Indication: HYPERTENSION
     Dosage: 10MG/40MG
     Dates: start: 20061101
  2. CADUET [Suspect]
     Indication: BLOOD CHOLESTEROL INCREASED
  3. COZAAR [Concomitant]
  4. INSULIN [Concomitant]
     Indication: DIABETES MELLITUS
  5. AROMASIN [Concomitant]
  6. NORVASC [Concomitant]
     Indication: HYPERTENSION
     Dates: end: 20061101
  7. LIPITOR [Concomitant]
     Indication: BLOOD CHOLESTEROL INCREASED
     Dates: end: 20061101

REACTIONS (11)
  - ALOPECIA [None]
  - BLOOD CREATININE INCREASED [None]
  - BLOOD UREA INCREASED [None]
  - DRY SKIN [None]
  - ERYTHEMA [None]
  - HAEMORRHAGE [None]
  - SECRETION DISCHARGE [None]
  - SKIN DISCOLOURATION [None]
  - SKIN IRRITATION [None]
  - SYNOVIAL CYST [None]
  - WEIGHT INCREASED [None]
